FAERS Safety Report 21913100 (Version 1)
Quarter: 2023Q1

REPORT INFORMATION
  Report Type: Spontaneous
  Country: US (occurrence: US)
  Receive Date: 20230125
  Receipt Date: 20230125
  Transmission Date: 20230418
  Serious: No
  Sender: FDA-Public Use
  Company Number: US-ALLERGAN-2241286US

PATIENT
  Sex: Female

DRUGS (4)
  1. BOTOX [Suspect]
     Active Substance: ONABOTULINUMTOXINA
     Indication: Lip cosmetic procedure
     Dosage: UNK, SINGLE
     Dates: start: 20221121, end: 20221121
  2. BOTOX [Suspect]
     Active Substance: ONABOTULINUMTOXINA
     Indication: Skin wrinkling
     Dosage: UNK, SINGLE
     Dates: start: 20221121, end: 20221121
  3. UNSPECIFIED INGREDIENT [Suspect]
     Active Substance: UNSPECIFIED INGREDIENT
     Indication: Lip cosmetic procedure
     Dosage: UNK
  4. UNSPECIFIED INGREDIENT [Suspect]
     Active Substance: UNSPECIFIED INGREDIENT
     Indication: Skin wrinkling

REACTIONS (9)
  - Facial asymmetry [Not Recovered/Not Resolved]
  - Swelling face [Unknown]
  - Periorbital swelling [Unknown]
  - Anxiety [Not Recovered/Not Resolved]
  - Insomnia [Not Recovered/Not Resolved]
  - Off label use [Unknown]
  - Condition aggravated [Not Recovered/Not Resolved]
  - Hypersensitivity [Unknown]
  - Skin wrinkling [Not Recovered/Not Resolved]

NARRATIVE: CASE EVENT DATE: 20221121
